FAERS Safety Report 4777335-6 (Version None)
Quarter: 2005Q3

REPORT INFORMATION
  Report Type: 
  Country: None (occurrence: None)
  Receive Date: 20050915
  Receipt Date: 20050905
  Transmission Date: 20060218
  Serious: Yes (Hospitalization)
  Sender: FDA-Public Use
  Company Number: 2005-132266-NL

PATIENT
  Sex: Female

DRUGS (5)
  1. MIRTAZAPINE [Suspect]
     Dosage: 15 MG, ORAL
     Route: 048
     Dates: start: 20040101, end: 20050809
  2. ATENOLOL [Concomitant]
  3. LORAZEPAM [Concomitant]
  4. RANITIDINE [Concomitant]
  5. FENTANYL [Concomitant]

REACTIONS (2)
  - FALL [None]
  - NEUTROPENIC SEPSIS [None]
